FAERS Safety Report 9499715 (Version 1)
Quarter: 2013Q3

REPORT INFORMATION
  Report Type: Spontaneous
  Country: FR (occurrence: None)
  Receive Date: 20130903
  Receipt Date: 20130903
  Transmission Date: 20140515
  Serious: Yes (Hospitalization)
  Sender: FDA-Public Use
  Company Number: ACO_38168_2013

PATIENT
  Age: 44 Year
  Sex: Male

DRUGS (4)
  1. FAMPYRA (DALFAMPRIDINE) TABLET, 10 MG [Suspect]
     Indication: GAIT DISTURBANCE
     Route: 048
     Dates: start: 20130805, end: 20130808
  2. ENDOXAN (CYCLOPHOSPHAMID) [Concomitant]
  3. MELATONIN (MELATONIN) [Concomitant]
  4. LIORESAL (BACLOFEN) [Concomitant]

REACTIONS (3)
  - Convulsion [None]
  - Partial seizures with secondary generalisation [None]
  - Status epilepticus [None]
